FAERS Safety Report 11132082 (Version 1)
Quarter: 2015Q2

REPORT INFORMATION
  Report Type: Spontaneous
  Country: US (occurrence: None)
  Receive Date: 20150521
  Receipt Date: 20150521
  Transmission Date: 20150821
  Serious: Yes (Other)
  Sender: FDA-Public Use
  Company Number: None

PATIENT
  Sex: Male
  Weight: 65 kg

DRUGS (3)
  1. NEUTROGENA RAPID TONE REPAIR MOISTURIZER NIGHT [Suspect]
     Active Substance: COSMETICS
     Indication: THERAPEUTIC SKIN CARE TOPICAL
     Route: 061
  2. NEUTROGENA RAPID TONE REPAIR DARK SPOT CORRECTOR [Suspect]
     Active Substance: COSMETICS
     Indication: THERAPEUTIC SKIN CARE TOPICAL
     Route: 061
  3. NEUTROGENA MICRODERMABRASION SYSTEM [Suspect]
     Active Substance: COSMETICS
     Indication: THERAPEUTIC SKIN CARE TOPICAL
     Dosage: 1 PUFF, 3 OR 4 TIME
     Route: 061

REACTIONS (3)
  - Application site pruritus [None]
  - Rash macular [None]
  - Hypersensitivity [None]
